FAERS Safety Report 7371816-7 (Version None)
Quarter: 2011Q1

REPORT INFORMATION
  Report Type: 
  Country: None (occurrence: None)
  Receive Date: 20110324
  Receipt Date: 20110311
  Transmission Date: 20110831
  Serious: Yes (Other)
  Sender: FDA-Public Use
  Company Number: PHHY2010DE82721

PATIENT
  Age: 52 Year
  Sex: Female
  Weight: 76 kg

DRUGS (4)
  1. PREDNISONE [Concomitant]
     Indication: PROSTATIC SPECIFIC ANTIGEN
     Dosage: 5 MG, UNK
     Route: 048
     Dates: start: 20090101
  2. HUMIRA [Concomitant]
     Indication: PROSTATIC SPECIFIC ANTIGEN
     Dosage: 40 MG, UNK
     Route: 058
     Dates: start: 20040401
  3. ARAVA [Concomitant]
     Indication: PROSTATIC SPECIFIC ANTIGEN
     Dosage: 20 MG, UNK
     Route: 048
     Dates: start: 20000101
  4. ACLASTA [Suspect]
     Indication: OSTEOPOROSIS
     Dosage: 5 MG ONCE YEARLY
     Route: 042
     Dates: start: 20080813, end: 20100813

REACTIONS (2)
  - PATHOLOGICAL FRACTURE [None]
  - FEMUR FRACTURE [None]
